FAERS Safety Report 14387337 (Version 1)
Quarter: 2018Q1

REPORT INFORMATION
  Report Type: Spontaneous
  Country: PL (occurrence: PL)
  Receive Date: 20180115
  Receipt Date: 20180115
  Transmission Date: 20180509
  Serious: Yes (Other)
  Sender: FDA-Public Use
  Company Number: PL-SA-2018SA006925

PATIENT
  Age: 60 Year
  Sex: Male
  Weight: 80 kg

DRUGS (16)
  1. CLEXANE [Suspect]
     Active Substance: ENOXAPARIN SODIUM
     Route: 058
  2. LOZAP (LOSARTAN POTASSIUM) [Suspect]
     Active Substance: LOSARTAN POTASSIUM
     Route: 048
  3. WARFIN [Suspect]
     Active Substance: WARFARIN
     Route: 042
     Dates: start: 20140211, end: 20140212
  4. KALIUM [Suspect]
     Active Substance: POTASSIUM CHLORIDE
     Route: 048
     Dates: start: 20140207, end: 20140212
  5. THEOSPIREX [Suspect]
     Active Substance: THEOPHYLLINE ANHYDROUS
     Route: 042
     Dates: start: 20140210, end: 20140212
  6. FUROSEMIDE. [Suspect]
     Active Substance: FUROSEMIDE
     Route: 042
  7. DIUVER [Suspect]
     Active Substance: TORSEMIDE
     Route: 048
  8. BERODUAL [Suspect]
     Active Substance: FENOTEROL HYDROBROMIDE\IPRATROPIUM BROMIDE
     Dosage: RESPIRATORY INHALATIONAL
     Route: 055
  9. ACC [Suspect]
     Active Substance: ACETYLCYSTEINE
     Route: 042
  10. BIODACYNA [Suspect]
     Active Substance: AMIKACIN SULFATE
     Route: 042
     Dates: start: 20140211, end: 20140212
  11. BETALOC ZOK [Suspect]
     Active Substance: METOPROLOL SUCCINATE
     Route: 048
  12. ATROVENT [Suspect]
     Active Substance: IPRATROPIUM BROMIDE
     Dosage: RESPIRATORY INHALATIONAL
     Route: 055
  13. KALIPOZ-PROLONGATUM [Suspect]
     Active Substance: POTASSIUM CHLORIDE
     Route: 048
  14. CIPRONEX [Suspect]
     Active Substance: CIPROFLOXACIN
     Route: 042
     Dates: start: 20140207, end: 20140212
  15. PYRALGINA [Suspect]
     Active Substance: METAMIZOLE MAGNESIUM
     Route: 042
     Dates: start: 20140205, end: 20140212
  16. ZOCOR [Suspect]
     Active Substance: SIMVASTATIN
     Route: 048

REACTIONS (5)
  - Dyspnoea [Recovered/Resolved]
  - Asthenia [Recovered/Resolved]
  - Blood pressure decreased [Recovered/Resolved]
  - Bradycardia [Recovered/Resolved]
  - Dizziness [Recovered/Resolved]

NARRATIVE: CASE EVENT DATE: 20140212
